FAERS Safety Report 5689155-9 (Version None)
Quarter: 2008Q1

REPORT INFORMATION
  Report Type: 
  Country: None (occurrence: None)
  Receive Date: 20080331
  Receipt Date: 19940414
  Transmission Date: 20080703
  Serious: Yes (Death)
  Sender: FDA-Public Use
  Company Number: IT-ROCHE-940700066001

PATIENT
  Age: 76 Year
  Sex: Male

DRUGS (4)
  1. ROCEPHIN [Suspect]
     Indication: PNEUMONIA
     Route: 030
     Dates: start: 19940226, end: 19940226
  2. STEROID [Concomitant]
     Route: 048
  3. THEOPHYLLINE [Concomitant]
     Route: 048
  4. BETA AGONIST [Concomitant]
     Route: 055

REACTIONS (1)
  - ASTHMA [None]
